FAERS Safety Report 10228029 (Version 1)
Quarter: 2014Q2

REPORT INFORMATION
  Report Type: Spontaneous
  Country: US (occurrence: None)
  Receive Date: 20140609
  Receipt Date: 20140609
  Transmission Date: 20141212
  Serious: Yes (Other)
  Sender: FDA-Public Use
  Company Number: None

PATIENT
  Age: 72 Year
  Sex: Female
  Weight: 77.11 kg

DRUGS (1)
  1. NITROFUR MAC [Suspect]
     Indication: CYSTITIS
     Route: 048
     Dates: start: 20140525, end: 20140604

REACTIONS (10)
  - Headache [None]
  - Diarrhoea [None]
  - Abdominal pain upper [None]
  - Chills [None]
  - Flatulence [None]
  - Dyspepsia [None]
  - Diarrhoea [None]
  - Aphagia [None]
  - Decreased appetite [None]
  - Dysgeusia [None]
